FAERS Safety Report 25823911 (Version 1)
Quarter: 2025Q3

REPORT INFORMATION
  Report Type: Spontaneous
  Country: US (occurrence: None)
  Receive Date: 20250918
  Receipt Date: 20250918
  Transmission Date: 20251020
  Serious: Yes (Other)
  Sender: FDA-CTU
  Company Number: None

PATIENT
  Age: 6 Year
  Sex: Male
  Weight: 20.7 kg

DRUGS (15)
  1. GAMUNEX-C [Suspect]
     Active Substance: HUMAN IMMUNOGLOBULIN G
     Indication: Blood immunoglobulin A decreased
     Dosage: OTHER QUANTITY : 10 10 G VIAL IV;?OTHER FREQUENCY : EVERY 28 DAYS;?
     Route: 042
     Dates: start: 20250910
  2. MIRALAX [Concomitant]
     Active Substance: POLYETHYLENE GLYCOL 3350
  3. FLEET (BISACODYL) [Concomitant]
     Active Substance: BISACODYL
  4. ZYRTEC [Concomitant]
     Active Substance: CETIRIZINE HYDROCHLORIDE
  5. SINGULAIR [Concomitant]
     Active Substance: MONTELUKAST SODIUM
  6. OMEPRAZOLE [Concomitant]
     Active Substance: OMEPRAZOLE
  7. MOTEGRITY [Concomitant]
     Active Substance: PRUCALOPRIDE SUCCINATE
  8. AZITHROMYCIN [Concomitant]
     Active Substance: AZITHROMYCIN
  9. GAMUNEX-C [Concomitant]
     Active Substance: HUMAN IMMUNOGLOBULIN G
  10. LORAZEPAM [Concomitant]
     Active Substance: LORAZEPAM
  11. IRON [Concomitant]
     Active Substance: IRON
  12. ADVAIR HFA [Concomitant]
     Active Substance: FLUTICASONE PROPIONATE\SALMETEROL XINAFOATE
  13. ALBUTEROL [Concomitant]
     Active Substance: ALBUTEROL
  14. ATROVENT [Concomitant]
     Active Substance: IPRATROPIUM BROMIDE
  15. SPIRIVA [Concomitant]
     Active Substance: TIOTROPIUM BROMIDE MONOHYDRATE

REACTIONS (6)
  - Dizziness [None]
  - Infusion related reaction [None]
  - Rash [None]
  - Staring [None]
  - Fatigue [None]
  - Speech disorder [None]

NARRATIVE: CASE EVENT DATE: 20250910
